FAERS Safety Report 5027798-6 (Version None)
Quarter: 2006Q2

REPORT INFORMATION
  Report Type: 
  Country: None (occurrence: None)
  Receive Date: 20060501
  Receipt Date: 20060105
  Transmission Date: 20061013
  Serious: No
  Sender: FDA-Public Use
  Company Number: 200516687US

PATIENT
  Age: 59 Year
  Sex: Male
  Weight: 97.07 kg

DRUGS (4)
  1. KETEK [Suspect]
     Indication: SINUSITIS
     Dosage: 500 MG BID PO
     Route: 048
     Dates: start: 20050503
  2. ALLEGRA [Concomitant]
  3. NEXIUM [Concomitant]
  4. NAPROXEN [Concomitant]

REACTIONS (3)
  - ARTHRALGIA [None]
  - MYALGIA [None]
  - RASH [None]
